FAERS Safety Report 24927484 (Version 4)
Quarter: 2025Q1

REPORT INFORMATION
  Report Type: Report from Study
  Country: US (occurrence: US)
  Receive Date: 20250205
  Receipt Date: 20250327
  Transmission Date: 20250408
  Serious: Yes (Hospitalization, Other)
  Sender: TAKEDA
  Company Number: US-TAKEDA-2025TUS009313

PATIENT
  Age: 59 Year
  Sex: Female
  Weight: 71.7 kg

DRUGS (2)
  1. MOBOCERTINIB [Suspect]
     Active Substance: MOBOCERTINIB
     Indication: Non-small cell lung cancer stage IV
     Dosage: 160 MILLIGRAM, QD
     Dates: start: 20221114, end: 20250120
  2. MOBOCERTINIB [Suspect]
     Active Substance: MOBOCERTINIB
     Dosage: 160 MILLIGRAM, QD
     Dates: start: 20250201, end: 20250205

REACTIONS (4)
  - Metastases to central nervous system [Unknown]
  - Hydrocephalus [Unknown]
  - Brain oedema [Recovered/Resolved with Sequelae]
  - Pneumonia [Recovered/Resolved]

NARRATIVE: CASE EVENT DATE: 20250123
